FAERS Safety Report 4501598-5 (Version None)
Quarter: 2004Q3

REPORT INFORMATION
  Report Type: 
  Country: None (occurrence: None)
  Receive Date: 20040928
  Receipt Date: 20040831
  Transmission Date: 20050211
  Serious: No
  Sender: FDA-Public Use
  Company Number: 04P-163-0271900-00

PATIENT
  Age: 68 Year
  Sex: Female
  Weight: 63.5036 kg

DRUGS (9)
  1. HUMIRA [Suspect]
     Indication: RHEUMATOID ARTHRITIS
     Dosage: 40 MG, 1 IN 2 WK, SUBCUTANEOUS
     Route: 058
     Dates: start: 20030101
  2. SERTRALINE HYDROCHLORIDE [Concomitant]
  3. ALPRAZOLAM [Concomitant]
  4. ATORVASTATIN CALCIUM [Concomitant]
  5. ENALAPRIL MALEATE [Concomitant]
  6. ASCORBIC ACID [Concomitant]
  7. MULTI-VITAMINS [Concomitant]
  8. CALCIUM [Concomitant]
  9. PREDNISONE [Concomitant]

REACTIONS (7)
  - COUGH [None]
  - DYSPHONIA [None]
  - INJECTION SITE ERYTHEMA [None]
  - INJECTION SITE PRURITUS [None]
  - INJECTION SITE SWELLING [None]
  - INJECTION SITE WARMTH [None]
  - NASOPHARYNGITIS [None]
